FAERS Safety Report 5572925-5 (Version None)
Quarter: 2007Q4

REPORT INFORMATION
  Report Type: 
  Country: None (occurrence: None)
  Receive Date: 20071220
  Receipt Date: 20071220
  Transmission Date: 20080405
  Serious: Yes (Hospitalization)
  Sender: FDA-Public Use
  Company Number: None

PATIENT
  Age: 49 Year
  Sex: Female
  Weight: 51.3 kg

DRUGS (1)
  1. DASATINIB 50MG CAPSULES [Suspect]
     Indication: OVARIAN CANCER
     Dosage: 100MG DAILY - ORAL
     Route: 048
     Dates: start: 20071116, end: 20071216

REACTIONS (1)
  - FEBRILE NEUTROPENIA [None]
